FAERS Safety Report 17218768 (Version 4)
Quarter: 2020Q1

REPORT INFORMATION
  Report Type: Spontaneous
  Country: FR (occurrence: FR)
  Receive Date: 20191231
  Receipt Date: 20200226
  Transmission Date: 20200409
  Serious: Yes (Death, Hospitalization, Other)
  Sender: FDA-Public Use
  Company Number: FR-JNJFOC-20191240472

PATIENT
  Age: 55 Year
  Sex: Male
  Weight: 93 kg

DRUGS (11)
  1. RAMIPRIL. [Suspect]
     Active Substance: RAMIPRIL
     Indication: HYPERTENSION
     Route: 048
     Dates: start: 20191024, end: 20191104
  2. LEVOFLOXACIN. [Suspect]
     Active Substance: LEVOFLOXACIN
     Indication: CELLULITIS
     Route: 048
     Dates: start: 20191024, end: 20191104
  3. CASPOFUNGINE [Suspect]
     Active Substance: CASPOFUNGIN
     Indication: CELLULITIS
     Route: 042
     Dates: start: 20191024, end: 20191104
  4. ROACTEMRA [Suspect]
     Active Substance: TOCILIZUMAB
     Indication: MALIGNANT FIBROUS HISTIOCYTOMA
     Route: 042
     Dates: start: 201907, end: 201909
  5. DAPTOMYCIN. [Suspect]
     Active Substance: DAPTOMYCIN
     Indication: CELLULITIS
     Route: 048
     Dates: start: 20191016, end: 20191104
  6. BACTRIM [Suspect]
     Active Substance: SULFAMETHOXAZOLE\TRIMETHOPRIM
     Indication: CELLULITIS
     Route: 048
     Dates: start: 20191003, end: 20191104
  7. CLOMIPRAMINE [Suspect]
     Active Substance: CLOMIPRAMINE
     Indication: NEURALGIA
     Route: 065
     Dates: start: 20191025, end: 20191104
  8. MEROPENEM. [Suspect]
     Active Substance: MEROPENEM
     Indication: CELLULITIS
     Route: 048
     Dates: start: 20191006, end: 20191104
  9. METHADONE [Suspect]
     Active Substance: METHADONE HYDROCHLORIDE
     Indication: CANCER PAIN
     Route: 048
     Dates: start: 201908
  10. YONDELIS [Suspect]
     Active Substance: TRABECTEDIN
     Indication: MALIGNANT FIBROUS HISTIOCYTOMA
     Route: 042
     Dates: start: 201908, end: 201909
  11. PREGABALINE [Suspect]
     Active Substance: PREGABALIN
     Indication: NEURALGIA
     Route: 048
     Dates: start: 2017

REACTIONS (2)
  - Encephalopathy [Not Recovered/Not Resolved]
  - Malignant fibrous histiocytoma [Fatal]

NARRATIVE: CASE EVENT DATE: 20191028
